FAERS Safety Report 7682855-0 (Version None)
Quarter: 2011Q3

REPORT INFORMATION
  Report Type: 
  Country: None (occurrence: None)
  Receive Date: 20110815
  Receipt Date: 20110804
  Transmission Date: 20111222
  Serious: Yes (Death, Other)
  Sender: FDA-Public Use
  Company Number: JP-ROCHE-767552

PATIENT
  Sex: Male
  Weight: 69 kg

DRUGS (9)
  1. PEGASYS [Suspect]
     Indication: HEPATITIS C
     Route: 058
     Dates: start: 20100519
  2. URSO 250 [Concomitant]
     Dosage: FORM: PERORAL AGENT
     Route: 048
  3. JUZENTAIHOTO [Concomitant]
     Dosage: FORM: GRANULATED POWDER
     Route: 048
     Dates: start: 20100605
  4. COPEGUS [Suspect]
     Route: 048
     Dates: start: 20100615, end: 20100716
  5. AMARYL [Concomitant]
     Route: 048
  6. COPEGUS [Suspect]
     Indication: HEPATITIS C
     Route: 048
     Dates: start: 20100519, end: 20100614
  7. COPEGUS [Suspect]
     Route: 048
     Dates: start: 20100717, end: 20100809
  8. COPEGUS [Suspect]
     Route: 048
     Dates: start: 20100810
  9. NOVORAPID [Concomitant]
     Dosage: FORM: PERORAL AGENT
     Route: 048
     Dates: start: 20110101

REACTIONS (4)
  - UPPER GASTROINTESTINAL HAEMORRHAGE [None]
  - VARICOSE VEIN RUPTURED [None]
  - ABDOMINAL DISTENSION [None]
  - INTERSTITIAL LUNG DISEASE [None]
